FAERS Safety Report 6282561-3 (Version None)
Quarter: 2009Q3

REPORT INFORMATION
  Report Type: 
  Country: None (occurrence: None)
  Receive Date: 20090724
  Receipt Date: 20090716
  Transmission Date: 20100115
  Serious: Yes (Other)
  Sender: FDA-Public Use
  Company Number: US-JNJFOC-20090706049

PATIENT
  Weight: 68.04 kg

DRUGS (3)
  1. RISPERDAL [Suspect]
     Indication: MENTAL DISORDER
     Route: 048
  2. BENZTROPEINE HYDROCHLORIDE [Concomitant]
     Indication: PROPHYLAXIS
     Route: 048
  3. BIRTH CONTROL PILLS [Concomitant]
     Indication: HORMONE REPLACEMENT THERAPY
     Route: 048

REACTIONS (5)
  - AMENORRHOEA [None]
  - ANXIETY [None]
  - BLOOD PROLACTIN INCREASED [None]
  - DEPRESSION [None]
  - WEIGHT INCREASED [None]
